FAERS Safety Report 21034092 (Version 1)
Quarter: 2022Q2

REPORT INFORMATION
  Report Type: Spontaneous
  Country: US (occurrence: None)
  Receive Date: 20220630
  Receipt Date: 20220630
  Transmission Date: 20220721
  Serious: No
  Sender: FDA-Public Use
  Company Number: None

PATIENT
  Age: 66 Year
  Sex: Male

DRUGS (1)
  1. OTEZLA [Suspect]
     Active Substance: APREMILAST
     Indication: Psoriatic arthropathy
     Dosage: OTHER STRENGTH : 10/20/30;?FREQUENCY : TWICE A DAY;?
     Route: 048
     Dates: start: 202205

REACTIONS (2)
  - Seizure [None]
  - Pain [None]

NARRATIVE: CASE EVENT DATE: 20220616
